FAERS Safety Report 6824974-4 (Version None)
Quarter: 2010Q3

REPORT INFORMATION
  Report Type: 
  Country: None (occurrence: None)
  Receive Date: 20100708
  Receipt Date: 20061219
  Transmission Date: 20110219
  Serious: No
  Sender: FDA-Public Use
  Company Number: US-PFIZER INC-2007000889

PATIENT
  Sex: Female
  Weight: 53.52 kg

DRUGS (5)
  1. CHANTIX [Suspect]
     Indication: SMOKING CESSATION THERAPY
     Route: 048
     Dates: start: 20061209
  2. CONTRACEPTIVE, UNSPECIFIED [Concomitant]
  3. VITAMINS [Concomitant]
  4. VITAMIN C [Concomitant]
  5. VITAMIN B-12 [Concomitant]

REACTIONS (1)
  - ABDOMINAL DISCOMFORT [None]
